FAERS Safety Report 6075723-1 (Version None)
Quarter: 2009Q1

REPORT INFORMATION
  Report Type: 
  Country: None (occurrence: None)
  Receive Date: 20090212
  Receipt Date: 20090210
  Transmission Date: 20090719
  Serious: Yes (Death, Life-Threatening)
  Sender: FDA-Public Use
  Company Number: JP-ASTRAZENECA-2008AP08399

PATIENT
  Age: 24976 Day
  Sex: Male

DRUGS (6)
  1. IRESSA [Suspect]
     Indication: LUNG NEOPLASM MALIGNANT
     Route: 048
     Dates: start: 20080729, end: 20080908
  2. DEPAS [Concomitant]
     Indication: INSOMNIA
     Route: 048
     Dates: start: 20080729, end: 20080825
  3. PREDONINE [Concomitant]
     Indication: PNEUMONIA
     Route: 048
     Dates: start: 20080812, end: 20080825
  4. PREDONINE [Concomitant]
     Route: 048
     Dates: start: 20080826, end: 20080908
  5. PREDONINE [Concomitant]
     Route: 048
     Dates: start: 20080909, end: 20080921
  6. GASTER [Concomitant]
     Indication: GASTRIC ULCER
     Route: 048
     Dates: start: 20080812

REACTIONS (2)
  - INTERSTITIAL LUNG DISEASE [None]
  - PNEUMOCYSTIS JIROVECI PNEUMONIA [None]
